FAERS Safety Report 4996168-9 (Version None)
Quarter: 2006Q2

REPORT INFORMATION
  Report Type: 
  Country: None (occurrence: None)
  Receive Date: 20060504
  Receipt Date: 20060421
  Transmission Date: 20061013
  Serious: Yes (Hospitalization)
  Sender: FDA-Public Use
  Company Number: 2006050564

PATIENT
  Age: 60 Year
  Sex: Female

DRUGS (5)
  1. HALCION [Suspect]
     Indication: INSOMNIA
     Dosage: 0.254 MG, ORAL
     Route: 048
  2. PAXIL [Suspect]
     Indication: DEPRESSION
     Dosage: 10 MG, ORAL
     Route: 048
  3. MEILAX (ETHYL LOFLAZEPAT) [Suspect]
     Indication: PSYCHOSOMATIC DISEASE
     Dosage: 1 MG, ORAL
     Route: 048
  4. CEREKINON (TRIMEBUTINE MALEATE) [Suspect]
     Indication: IRRITABLE BOWEL SYNDROME
     Dosage: 300 MG, ORAL
     Route: 048
  5. URSO 250 [Suspect]
     Indication: CHRONIC HEPATITIS
     Dosage: 600 MG (ORAL)

REACTIONS (2)
  - GAMMA-GLUTAMYLTRANSFERASE INCREASED [None]
  - HEPATIC FUNCTION ABNORMAL [None]
